FAERS Safety Report 15219753 (Version 10)
Quarter: 2021Q4

REPORT INFORMATION
  Report Type: Other
  Country: DE (occurrence: None)
  Receive Date: 20180731
  Receipt Date: 20211221
  Transmission Date: 20220303
  Serious: Yes (Other)
  Sender: FDA-Public Use
  Company Number: DE-NODEN PHARMA DAC-NOD-2018-000052

PATIENT
  Sex: Female

DRUGS (162)
  1. RASILEZ [Suspect]
     Active Substance: ALISKIREN
     Indication: Foetal exposure during pregnancy
     Dosage: 300 [MG/D]; 0-4.6 GESTATIONAL WEEK
     Route: 064
     Dates: start: 20111214, end: 20120117
  2. RASILEZ [Suspect]
     Active Substance: ALISKIREN
     Indication: Product used for unknown indication
  3. PREDNISOLONE [Suspect]
     Active Substance: PREDNISOLONE
     Indication: Foetal exposure during pregnancy
     Dosage: UNK
     Route: 064
  4. PREDNISOLONE [Suspect]
     Active Substance: PREDNISOLONE
     Dosage: FROM GESTATIONAL WEEK 0-14
     Route: 064
     Dates: start: 20111214, end: 20120320
  5. PREDNISOLONE [Suspect]
     Active Substance: PREDNISOLONE
     Dosage: UNK
     Route: 064
  6. PREDNISOLONE [Suspect]
     Active Substance: PREDNISOLONE
     Dosage: FROM GESTATIONAL WEEK 0-14
     Route: 064
     Dates: start: 20111214, end: 20120320
  7. PREDNISOLONE [Suspect]
     Active Substance: PREDNISOLONE
     Dosage: UNK
     Route: 064
  8. PREDNISOLONE [Suspect]
     Active Substance: PREDNISOLONE
     Dosage: FROM GESTATIONAL WEEK 0-14
     Route: 064
     Dates: start: 20111214, end: 20120320
  9. PREDNISOLONE [Suspect]
     Active Substance: PREDNISOLONE
     Dosage: UNK
     Route: 064
  10. PREDNISOLONE [Suspect]
     Active Substance: PREDNISOLONE
     Dosage: FROM GESTATIONAL WEEK 0-14
     Route: 064
     Dates: start: 20111214, end: 20120320
  11. PREDNISOLONE [Suspect]
     Active Substance: PREDNISOLONE
     Dosage: UNK
     Route: 064
  12. PREDNISOLONE [Suspect]
     Active Substance: PREDNISOLONE
     Dosage: FROM GESTATIONAL WEEK 0-14
     Route: 064
     Dates: start: 20111214, end: 20120320
  13. PREDNISOLONE [Suspect]
     Active Substance: PREDNISOLONE
     Dosage: UNK
     Route: 064
  14. PREDNISOLONE [Suspect]
     Active Substance: PREDNISOLONE
     Dosage: FROM GESTATIONAL WEEK 0-14
     Route: 064
     Dates: start: 20111214, end: 20120320
  15. PREDNISOLONE [Suspect]
     Active Substance: PREDNISOLONE
     Dosage: UNK
     Route: 064
  16. PREDNISOLONE [Suspect]
     Active Substance: PREDNISOLONE
     Dosage: FROM GESTATIONAL WEEK 0-14
     Route: 064
     Dates: start: 20111214, end: 20120320
  17. PREDNISOLONE [Suspect]
     Active Substance: PREDNISOLONE
     Dosage: UNK
     Route: 064
  18. PREDNISOLONE [Suspect]
     Active Substance: PREDNISOLONE
     Dosage: FROM GESTATIONAL WEEK 0-14
     Route: 064
     Dates: start: 20111214, end: 20120320
  19. ALBUTEROL SULFATE [Suspect]
     Active Substance: ALBUTEROL SULFATE
     Indication: Foetal exposure during pregnancy
     Dosage: UNK, IF REQUIRED; TRIMESTER: FIRST+SECOND;FROM GESTATIONAL WEEK 0-14
     Route: 064
  20. ALBUTEROL SULFATE [Suspect]
     Active Substance: ALBUTEROL SULFATE
     Dosage: UNK
     Route: 064
  21. ALBUTEROL SULFATE [Suspect]
     Active Substance: ALBUTEROL SULFATE
     Dosage: UNK, IF REQUIRED; TRIMESTER: FIRST+SECOND;FROM GESTATIONAL WEEK 0-14
     Route: 064
  22. ALBUTEROL SULFATE [Suspect]
     Active Substance: ALBUTEROL SULFATE
     Dosage: UNK
     Route: 064
  23. ALBUTEROL SULFATE [Suspect]
     Active Substance: ALBUTEROL SULFATE
     Dosage: UNK, IF REQUIRED; TRIMESTER: FIRST+SECOND;FROM GESTATIONAL WEEK 0-14
     Route: 064
  24. ALBUTEROL SULFATE [Suspect]
     Active Substance: ALBUTEROL SULFATE
     Dosage: UNK
     Route: 064
  25. ALBUTEROL SULFATE [Suspect]
     Active Substance: ALBUTEROL SULFATE
     Dosage: UNK, IF REQUIRED; TRIMESTER: FIRST+SECOND;FROM GESTATIONAL WEEK 0-14
     Route: 064
  26. ALBUTEROL SULFATE [Suspect]
     Active Substance: ALBUTEROL SULFATE
     Dosage: UNK
     Route: 064
  27. ALBUTEROL SULFATE [Suspect]
     Active Substance: ALBUTEROL SULFATE
     Dosage: UNK, IF REQUIRED; TRIMESTER: FIRST+SECOND;FROM GESTATIONAL WEEK 0-14
     Route: 064
  28. ALBUTEROL SULFATE [Suspect]
     Active Substance: ALBUTEROL SULFATE
     Dosage: UNK
     Route: 064
  29. ALBUTEROL SULFATE [Suspect]
     Active Substance: ALBUTEROL SULFATE
     Dosage: UNK, IF REQUIRED; TRIMESTER: FIRST+SECOND;FROM GESTATIONAL WEEK 0-14
     Route: 064
  30. ALBUTEROL SULFATE [Suspect]
     Active Substance: ALBUTEROL SULFATE
     Dosage: UNK
     Route: 064
  31. RAMIPRIL [Suspect]
     Active Substance: RAMIPRIL
     Indication: Foetal exposure during pregnancy
     Dosage: MATERNAL DOSE 20 MG, QD (EXPOSURE DURATION 0-13+6 WEEKS)
     Route: 064
     Dates: start: 20111214, end: 20120320
  32. RAMIPRIL [Suspect]
     Active Substance: RAMIPRIL
     Indication: Hypertension
     Dosage: MATERNAL DOSE 20 MG, QD (EXPOSURE DURATION 0-13+6 WEEKS)
     Route: 064
     Dates: start: 20111214, end: 20120320
  33. RAMIPRIL [Suspect]
     Active Substance: RAMIPRIL
     Dosage: MATERNAL DOSE 20 MG, QD (EXPOSURE DURATION 0-13+6 WEEKS)
     Route: 064
     Dates: start: 20111214, end: 20120320
  34. RAMIPRIL [Suspect]
     Active Substance: RAMIPRIL
     Dosage: MATERNAL DOSE 20 MG, QD (EXPOSURE DURATION 0-13+6 WEEKS)
     Route: 064
     Dates: start: 20111214, end: 20120320
  35. RAMIPRIL [Suspect]
     Active Substance: RAMIPRIL
     Dosage: MATERNAL DOSE 20 MG, QD (EXPOSURE DURATION 0-13+6 WEEKS)
     Route: 064
     Dates: start: 20111214, end: 20120320
  36. RAMIPRIL [Suspect]
     Active Substance: RAMIPRIL
     Dosage: MATERNAL DOSE 20 MG, QD (EXPOSURE DURATION 0-13+6 WEEKS)
     Route: 064
     Dates: start: 20111214, end: 20120320
  37. RAMIPRIL [Suspect]
     Active Substance: RAMIPRIL
  38. RAMIPRIL [Suspect]
     Active Substance: RAMIPRIL
  39. RAMIPRIL [Suspect]
     Active Substance: RAMIPRIL
  40. RAMIPRIL [Suspect]
     Active Substance: RAMIPRIL
  41. RAMIPRIL [Suspect]
     Active Substance: RAMIPRIL
  42. HYDROXYCHLOROQUINE [Suspect]
     Active Substance: HYDROXYCHLOROQUINE
     Indication: Foetal exposure during pregnancy
     Dosage: 400 [MG/D (2X200)]; 0-13.6 GESTATIONAL WEEK;FROM GESTATIONAL WEEK 0-14
     Route: 064
     Dates: start: 20111214, end: 20120320
  43. HYDROXYCHLOROQUINE [Suspect]
     Active Substance: HYDROXYCHLOROQUINE
     Dosage: UNK
     Route: 064
  44. HYDROXYCHLOROQUINE [Suspect]
     Active Substance: HYDROXYCHLOROQUINE
     Dosage: 400 [MG/D (2X200)]; 0-13.6 GESTATIONAL WEEK;FROM GESTATIONAL WEEK 0-14
     Route: 064
     Dates: start: 20111214, end: 20120320
  45. HYDROXYCHLOROQUINE [Suspect]
     Active Substance: HYDROXYCHLOROQUINE
     Dosage: UNK
     Route: 064
  46. HYDROXYCHLOROQUINE [Suspect]
     Active Substance: HYDROXYCHLOROQUINE
     Dosage: 400 [MG/D (2X200)]; 0-13.6 GESTATIONAL WEEK;FROM GESTATIONAL WEEK 0-14
     Route: 064
     Dates: start: 20111214, end: 20120320
  47. HYDROXYCHLOROQUINE [Suspect]
     Active Substance: HYDROXYCHLOROQUINE
     Dosage: UNK
     Route: 064
  48. HYDROXYCHLOROQUINE [Suspect]
     Active Substance: HYDROXYCHLOROQUINE
  49. HYDROXYCHLOROQUINE [Suspect]
     Active Substance: HYDROXYCHLOROQUINE
  50. HYDROXYCHLOROQUINE [Suspect]
     Active Substance: HYDROXYCHLOROQUINE
  51. HYDROXYCHLOROQUINE [Suspect]
     Active Substance: HYDROXYCHLOROQUINE
  52. HYDROXYCHLOROQUINE [Suspect]
     Active Substance: HYDROXYCHLOROQUINE
  53. HYDROXYCHLOROQUINE [Suspect]
     Active Substance: HYDROXYCHLOROQUINE
  54. HYDROXYCHLOROQUINE [Suspect]
     Active Substance: HYDROXYCHLOROQUINE
  55. HYDROXYCHLOROQUINE [Suspect]
     Active Substance: HYDROXYCHLOROQUINE
  56. HYDROXYCHLOROQUINE [Suspect]
     Active Substance: HYDROXYCHLOROQUINE
  57. HYDROXYCHLOROQUINE [Suspect]
     Active Substance: HYDROXYCHLOROQUINE
  58. HYDROXYCHLOROQUINE [Suspect]
     Active Substance: HYDROXYCHLOROQUINE
  59. HYDROXYCHLOROQUINE [Suspect]
     Active Substance: HYDROXYCHLOROQUINE
  60. ASPIRIN [Suspect]
     Active Substance: ASPIRIN
     Indication: Foetal exposure during pregnancy
     Dosage: FROM GESTATIONAL WEEK 0-14
     Route: 064
     Dates: start: 20111214, end: 20120320
  61. ASPIRIN [Suspect]
     Active Substance: ASPIRIN
     Indication: Embolism venous
     Dosage: FROM GESTATIONAL WEEK 0-14
     Route: 064
  62. ASPIRIN [Suspect]
     Active Substance: ASPIRIN
     Indication: Systemic lupus erythematosus
     Dosage: FROM GESTATIONAL WEEK 0-14
     Route: 064
     Dates: start: 20111214, end: 20120320
  63. ASPIRIN [Suspect]
     Active Substance: ASPIRIN
     Dosage: FROM GESTATIONAL WEEK 0-14
     Route: 064
  64. ASPIRIN [Suspect]
     Active Substance: ASPIRIN
     Dosage: FROM GESTATIONAL WEEK 0-14
     Route: 064
     Dates: start: 20111214, end: 20120320
  65. ASPIRIN [Suspect]
     Active Substance: ASPIRIN
     Dosage: FROM GESTATIONAL WEEK 0-14
     Route: 064
  66. ASPIRIN [Suspect]
     Active Substance: ASPIRIN
     Dosage: FROM GESTATIONAL WEEK 0-14
     Route: 064
     Dates: start: 20111214, end: 20120320
  67. ASPIRIN [Suspect]
     Active Substance: ASPIRIN
     Dosage: FROM GESTATIONAL WEEK 0-14
     Route: 064
  68. ASPIRIN [Suspect]
     Active Substance: ASPIRIN
     Dosage: FROM GESTATIONAL WEEK 0-14
     Route: 064
     Dates: start: 20111214, end: 20120320
  69. ASPIRIN [Suspect]
     Active Substance: ASPIRIN
     Dosage: FROM GESTATIONAL WEEK 0-14
     Route: 064
  70. ASPIRIN [Suspect]
     Active Substance: ASPIRIN
     Dosage: FROM GESTATIONAL WEEK 0-14
     Route: 064
     Dates: start: 20111214, end: 20120320
  71. ASPIRIN [Suspect]
     Active Substance: ASPIRIN
     Dosage: FROM GESTATIONAL WEEK 0-14
     Route: 064
  72. PANTOZOL [Suspect]
     Active Substance: PANTOPRAZOLE SODIUM
     Indication: Product used for unknown indication
     Dosage: 40 [MG/D]; 0-13.6 GESTATIONAL WEEK;FROM GESTATIONAL WEEK 0-14 (BUSCO PANTOPRAZOLE)
     Route: 064
     Dates: start: 20111214, end: 20120320
  73. PANTOZOL [Suspect]
     Active Substance: PANTOPRAZOLE SODIUM
     Indication: Foetal exposure during pregnancy
     Dosage: UNK
     Route: 064
  74. PANTOZOL [Suspect]
     Active Substance: PANTOPRAZOLE SODIUM
     Dosage: 40 [MG/D]; 0-13.6 GESTATIONAL WEEK;FROM GESTATIONAL WEEK 0-14 (BUSCO PANTOPRAZOLE)
     Route: 064
     Dates: start: 20111214, end: 20120320
  75. PANTOZOL [Suspect]
     Active Substance: PANTOPRAZOLE SODIUM
     Dosage: UNK
     Route: 064
  76. PANTOZOL [Suspect]
     Active Substance: PANTOPRAZOLE SODIUM
     Dosage: 40 [MG/D]; 0-13.6 GESTATIONAL WEEK;FROM GESTATIONAL WEEK 0-14 (BUSCO PANTOPRAZOLE)
     Route: 064
     Dates: start: 20111214, end: 20120320
  77. PANTOZOL [Suspect]
     Active Substance: PANTOPRAZOLE SODIUM
     Dosage: UNK
     Route: 064
  78. PANTOZOL [Suspect]
     Active Substance: PANTOPRAZOLE SODIUM
     Dosage: 40 [MG/D]; 0-13.6 GESTATIONAL WEEK;FROM GESTATIONAL WEEK 0-14 (BUSCO PANTOPRAZOLE)
     Route: 064
     Dates: start: 20111214, end: 20120320
  79. PANTOZOL [Suspect]
     Active Substance: PANTOPRAZOLE SODIUM
     Dosage: UNK
     Route: 064
  80. PANTOZOL [Suspect]
     Active Substance: PANTOPRAZOLE SODIUM
     Dosage: 40 [MG/D]; 0-13.6 GESTATIONAL WEEK;FROM GESTATIONAL WEEK 0-14 (BUSCO PANTOPRAZOLE)
     Route: 064
     Dates: start: 20111214, end: 20120320
  81. PANTOZOL [Suspect]
     Active Substance: PANTOPRAZOLE SODIUM
     Dosage: UNK
     Route: 064
  82. TORSEMIDE [Suspect]
     Active Substance: TORSEMIDE
     Indication: Foetal exposure during pregnancy
     Dosage: FROM GESTATIONAL WEEK 0-14
     Route: 064
     Dates: start: 20111214, end: 20120320
  83. TORSEMIDE [Suspect]
     Active Substance: TORSEMIDE
     Dosage: UNK
     Route: 064
  84. TORSEMIDE [Suspect]
     Active Substance: TORSEMIDE
     Dosage: FROM GESTATIONAL WEEK 0-14
     Route: 064
     Dates: start: 20111214, end: 20120320
  85. TORSEMIDE [Suspect]
     Active Substance: TORSEMIDE
     Dosage: UNK
     Route: 064
  86. TORSEMIDE [Suspect]
     Active Substance: TORSEMIDE
     Dosage: FROM GESTATIONAL WEEK 0-14
     Route: 064
     Dates: start: 20111214, end: 20120320
  87. TORSEMIDE [Suspect]
     Active Substance: TORSEMIDE
     Dosage: UNK
     Route: 064
  88. TORSEMIDE [Suspect]
     Active Substance: TORSEMIDE
     Dosage: FROM GESTATIONAL WEEK 0-14
     Route: 064
     Dates: start: 20111214, end: 20120320
  89. TORSEMIDE [Suspect]
     Active Substance: TORSEMIDE
     Dosage: UNK
     Route: 064
  90. TORSEMIDE [Suspect]
     Active Substance: TORSEMIDE
     Dosage: FROM GESTATIONAL WEEK 0-14
     Route: 064
     Dates: start: 20111214, end: 20120320
  91. TORSEMIDE [Suspect]
     Active Substance: TORSEMIDE
     Dosage: UNK
     Route: 064
  92. TORSEMIDE [Suspect]
     Active Substance: TORSEMIDE
     Dosage: FROM GESTATIONAL WEEK 0-14
     Route: 064
     Dates: start: 20111214, end: 20120320
  93. TORSEMIDE [Suspect]
     Active Substance: TORSEMIDE
     Dosage: UNK
     Route: 064
  94. TACROLIMUS [Suspect]
     Active Substance: TACROLIMUS
     Indication: Foetal exposure during pregnancy
     Dosage: 6 [MG/D]; 0-13.6 GESTATIONAL WEEK, FROM GESTATIONAL WEEK 0-14
     Route: 064
     Dates: start: 20111214, end: 20120320
  95. TACROLIMUS [Suspect]
     Active Substance: TACROLIMUS
     Indication: Embolism venous
     Dosage: UNK
     Route: 064
  96. TACROLIMUS [Suspect]
     Active Substance: TACROLIMUS
     Indication: Systemic lupus erythematosus
     Dosage: 6 [MG/D]; 0-13.6 GESTATIONAL WEEK, FROM GESTATIONAL WEEK 0-14
     Route: 064
     Dates: start: 20111214, end: 20120320
  97. TACROLIMUS [Suspect]
     Active Substance: TACROLIMUS
     Dosage: UNK
     Route: 064
  98. TACROLIMUS [Suspect]
     Active Substance: TACROLIMUS
     Dosage: 6 [MG/D]; 0-13.6 GESTATIONAL WEEK, FROM GESTATIONAL WEEK 0-14
     Route: 064
     Dates: start: 20111214, end: 20120320
  99. TACROLIMUS [Suspect]
     Active Substance: TACROLIMUS
     Dosage: UNK
     Route: 064
  100. TACROLIMUS [Suspect]
     Active Substance: TACROLIMUS
     Dosage: 6 [MG/D]; 0-13.6 GESTATIONAL WEEK, FROM GESTATIONAL WEEK 0-14
     Route: 064
     Dates: start: 20111214, end: 20120320
  101. TACROLIMUS [Suspect]
     Active Substance: TACROLIMUS
     Dosage: UNK
     Route: 064
  102. NICOTINE [Suspect]
     Active Substance: NICOTINE
     Indication: Product used for unknown indication
     Dosage: FROM GESTATIONAL WEEK 0-14
     Route: 064
  103. NICOTINE [Suspect]
     Active Substance: NICOTINE
     Indication: Foetal exposure during pregnancy
     Dosage: UNK
     Route: 064
  104. NICOTINE [Suspect]
     Active Substance: NICOTINE
     Dosage: FROM GESTATIONAL WEEK 0-14
     Route: 064
  105. NICOTINE [Suspect]
     Active Substance: NICOTINE
     Dosage: UNK
     Route: 064
  106. NICOTINE [Suspect]
     Active Substance: NICOTINE
     Dosage: FROM GESTATIONAL WEEK 0-14
     Route: 064
  107. NICOTINE [Suspect]
     Active Substance: NICOTINE
     Dosage: UNK
     Route: 064
  108. NICOTINE [Suspect]
     Active Substance: NICOTINE
     Dosage: FROM GESTATIONAL WEEK 0-14
     Route: 064
  109. NICOTINE [Suspect]
     Active Substance: NICOTINE
     Dosage: UNK
     Route: 064
  110. NICOTINE [Suspect]
     Active Substance: NICOTINE
     Dosage: FROM GESTATIONAL WEEK 0-14
     Route: 064
  111. NICOTINE [Suspect]
     Active Substance: NICOTINE
     Dosage: UNK
     Route: 064
  112. NICOTINE [Suspect]
     Active Substance: NICOTINE
     Dosage: FROM GESTATIONAL WEEK 0-14
     Route: 064
  113. NICOTINE [Suspect]
     Active Substance: NICOTINE
     Dosage: UNK
     Route: 064
  114. NICOTINE [Suspect]
     Active Substance: NICOTINE
     Dosage: FROM GESTATIONAL WEEK 0-14
     Route: 064
  115. NICOTINE [Suspect]
     Active Substance: NICOTINE
     Dosage: UNK
     Route: 064
  116. EZETIMIBE [Suspect]
     Active Substance: EZETIMIBE
     Indication: Foetal exposure during pregnancy
     Dosage: FROM GESTATIONAL WEEK 0-14
     Route: 064
  117. EZETIMIBE [Suspect]
     Active Substance: EZETIMIBE
     Dosage: FROM GESTATIONAL WEEK 0-14
     Route: 064
  118. EZETIMIBE [Suspect]
     Active Substance: EZETIMIBE
     Dosage: FROM GESTATIONAL WEEK 0-14
     Route: 064
  119. EZETIMIBE [Suspect]
     Active Substance: EZETIMIBE
     Dosage: FROM GESTATIONAL WEEK 0-14
     Route: 064
  120. METAMIZOLE [Suspect]
     Active Substance: METAMIZOLE
     Indication: Foetal exposure during pregnancy
     Dosage: EXPOSURE DURATION: 0-14 WEEKS. TRIMESTER: FIRST; PROBABLY ONLY IN HOSPITAL IN WEEK 5.
     Route: 064
  121. METAMIZOLE [Suspect]
     Active Substance: METAMIZOLE
     Indication: Exposure during pregnancy
     Dosage: 300 MILLIGRAM, QD
     Route: 064
     Dates: start: 20111214, end: 20120117
  122. METAMIZOLE [Suspect]
     Active Substance: METAMIZOLE
     Dosage: UNK; TRIMESTER: FIRST; PROBABLY ONLY IN HOSPITAL IN WEEK 5
     Route: 064
  123. METAMIZOLE [Suspect]
     Active Substance: METAMIZOLE
     Dosage: EXPOSURE DURATION: 0-14 WEEKS. TRIMESTER: FIRST; PROBABLY ONLY IN HOSPITAL IN WEEK 5.
     Route: 064
  124. METAMIZOLE [Suspect]
     Active Substance: METAMIZOLE
     Dosage: 300 MILLIGRAM, QD
     Route: 064
     Dates: start: 20111214, end: 20120117
  125. METAMIZOLE [Suspect]
     Active Substance: METAMIZOLE
     Dosage: UNK; TRIMESTER: FIRST; PROBABLY ONLY IN HOSPITAL IN WEEK 5
     Route: 064
  126. METAMIZOLE [Suspect]
     Active Substance: METAMIZOLE
     Dosage: EXPOSURE DURATION: 0-14 WEEKS. TRIMESTER: FIRST; PROBABLY ONLY IN HOSPITAL IN WEEK 5.
     Route: 064
  127. METAMIZOLE [Suspect]
     Active Substance: METAMIZOLE
     Dosage: 300 MILLIGRAM, QD
     Route: 064
     Dates: start: 20111214, end: 20120117
  128. METAMIZOLE [Suspect]
     Active Substance: METAMIZOLE
     Dosage: UNK; TRIMESTER: FIRST; PROBABLY ONLY IN HOSPITAL IN WEEK 5
     Route: 064
  129. METAMIZOLE [Suspect]
     Active Substance: METAMIZOLE
     Dosage: EXPOSURE DURATION: 0-14 WEEKS. TRIMESTER: FIRST; PROBABLY ONLY IN HOSPITAL IN WEEK 5.
     Route: 064
  130. METAMIZOLE [Suspect]
     Active Substance: METAMIZOLE
     Dosage: 300 MILLIGRAM, QD
     Route: 064
     Dates: start: 20111214, end: 20120117
  131. METAMIZOLE [Suspect]
     Active Substance: METAMIZOLE
     Dosage: UNK; TRIMESTER: FIRST; PROBABLY ONLY IN HOSPITAL IN WEEK 5
     Route: 064
  132. SIMVASTATIN [Suspect]
     Active Substance: SIMVASTATIN
     Indication: Foetal exposure during pregnancy
     Dosage: FROM GESTATIONAL WEEK 0-14
     Route: 064
     Dates: start: 20111214, end: 20120320
  133. SIMVASTATIN [Suspect]
     Active Substance: SIMVASTATIN
     Dosage: FROM GESTATIONAL WEEK 0-14
     Route: 064
     Dates: start: 20111214, end: 20120320
  134. SIMVASTATIN [Suspect]
     Active Substance: SIMVASTATIN
     Dosage: FROM GESTATIONAL WEEK 0-14
     Route: 064
     Dates: start: 20111214, end: 20120320
  135. SIMVASTATIN [Suspect]
     Active Substance: SIMVASTATIN
     Dosage: FROM GESTATIONAL WEEK 0-14
     Route: 064
     Dates: start: 20111214, end: 20120320
  136. SIMVASTATIN [Suspect]
     Active Substance: SIMVASTATIN
     Dosage: FROM GESTATIONAL WEEK 0-14
     Route: 064
     Dates: start: 20111214, end: 20120320
  137. SIMVASTATIN [Suspect]
     Active Substance: SIMVASTATIN
     Dosage: FROM GESTATIONAL WEEK 0-14
     Route: 064
     Dates: start: 20111214, end: 20120320
  138. SIMVASTATIN [Suspect]
     Active Substance: SIMVASTATIN
     Dosage: FROM GESTATIONAL WEEK 0-14
     Route: 064
     Dates: start: 20111214, end: 20120320
  139. XARELTO [Suspect]
     Active Substance: RIVAROXABAN
     Indication: Foetal exposure during pregnancy
     Dosage: FROM GESTATIONAL WEEK 0-5
     Route: 064
  140. XARELTO [Suspect]
     Active Substance: RIVAROXABAN
     Dosage: FROM GESTATIONAL WEEK 0-5
     Route: 064
  141. XARELTO [Suspect]
     Active Substance: RIVAROXABAN
     Dosage: FROM GESTATIONAL WEEK 0-5
     Route: 064
  142. XARELTO [Suspect]
     Active Substance: RIVAROXABAN
     Dosage: FROM GESTATIONAL WEEK 0-5
     Route: 064
  143. UNSPECIFIED INGREDIENT [Suspect]
     Active Substance: UNSPECIFIED INGREDIENT
     Indication: Product used for unknown indication
     Dosage: UNKNOWN
     Route: 064
  144. UNSPECIFIED INGREDIENT [Suspect]
     Active Substance: UNSPECIFIED INGREDIENT
     Indication: Foetal exposure during pregnancy
     Dosage: UNKNOWN
     Route: 064
  145. ENOXAPARIN SODIUM [Suspect]
     Active Substance: ENOXAPARIN SODIUM
     Indication: Foetal exposure during pregnancy
     Dosage: 200 MILLIGRAM, QD
     Route: 064
     Dates: start: 20111214, end: 20120320
  146. ENOXAPARIN SODIUM [Suspect]
     Active Substance: ENOXAPARIN SODIUM
     Indication: Product used for unknown indication
     Dosage: 200 MG/D (2X100)
     Route: 064
     Dates: start: 20111214, end: 20120320
  147. ENOXAPARIN SODIUM [Suspect]
     Active Substance: ENOXAPARIN SODIUM
     Indication: Pulmonary embolism
     Dosage: 200 MILLIGRAM, QD
     Route: 064
     Dates: start: 20111214, end: 20120320
  148. ENOXAPARIN SODIUM [Suspect]
     Active Substance: ENOXAPARIN SODIUM
     Dosage: 200 MG/D (2X100)
     Route: 064
     Dates: start: 20111214, end: 20120320
  149. ENOXAPARIN SODIUM [Suspect]
     Active Substance: ENOXAPARIN SODIUM
     Dosage: 200 MILLIGRAM, QD
     Route: 064
     Dates: start: 20111214, end: 20120320
  150. ENOXAPARIN SODIUM [Suspect]
     Active Substance: ENOXAPARIN SODIUM
     Dosage: 200 MG/D (2X100)
     Route: 064
     Dates: start: 20111214, end: 20120320
  151. RITUXIMAB [Suspect]
     Active Substance: RITUXIMAB
     Indication: Product used for unknown indication
     Dosage: UNK, LAST TIME IN DECEMBER 2011: PRE OR PERICONCEPTIONAL
     Route: 064
     Dates: end: 201112
  152. RITUXIMAB [Suspect]
     Active Substance: RITUXIMAB
     Indication: Systemic lupus erythematosus
     Dosage: UNK
     Route: 064
  153. RITUXIMAB [Suspect]
     Active Substance: RITUXIMAB
     Dosage: UNK, LAST TIME IN DECEMBER 2011: PRE OR PERICONCEPTIONAL
     Route: 064
     Dates: end: 201112
  154. RITUXIMAB [Suspect]
     Active Substance: RITUXIMAB
     Dosage: UNK
     Route: 064
  155. RITUXIMAB [Suspect]
     Active Substance: RITUXIMAB
     Dosage: UNK, LAST TIME IN DECEMBER 2011: PRE OR PERICONCEPTIONAL
     Route: 064
     Dates: end: 201112
  156. RITUXIMAB [Suspect]
     Active Substance: RITUXIMAB
     Dosage: UNK
     Route: 064
  157. ENOXAPARIN [Suspect]
     Active Substance: ENOXAPARIN
     Indication: Product used for unknown indication
     Dosage: FROM GESTATIONAL WEEK 0-14
     Route: 064
  158. HEPARIN [Suspect]
     Active Substance: HEPARIN SODIUM
     Indication: Foetal exposure during pregnancy
     Dosage: UNK (LOW MOLECULAR WEIGHT HEPARIN)
     Route: 064
  159. MIFEPRISTONE [Concomitant]
     Active Substance: MIFEPRISTONE
     Indication: Abortion induced
     Dosage: UNK; 13.6 GESTATIONAL WEEK
     Route: 064
     Dates: start: 20120320, end: 20120320
  160. CYTOTEC [Concomitant]
     Active Substance: MISOPROSTOL
     Indication: Abortion induced
     Dosage: UNK; 13.6 GESTATIONAL WEEK
     Route: 064
     Dates: start: 20120320, end: 20120320
  161. CYCLOPHOSPHAMIDE [Concomitant]
     Active Substance: CYCLOPHOSPHAMIDE
     Indication: Product used for unknown indication
     Dosage: 3000 [MG CUMULATIVE]; PRECONCEPTIONAL
     Route: 064
     Dates: start: 201104, end: 201108
  162. CYCLOPHOSPHAMIDE [Concomitant]
     Active Substance: CYCLOPHOSPHAMIDE
     Indication: Systemic lupus erythematosus
     Dosage: 3000 [MG CUMULATIVE]; PRECONCEPTIONAL
     Route: 064
     Dates: start: 201104, end: 201108

REACTIONS (2)
  - Abortion induced [Unknown]
  - Exposure during pregnancy [Unknown]
